FAERS Safety Report 16033744 (Version 2)
Quarter: 2020Q3

REPORT INFORMATION
  Report Type: Spontaneous
  Country: CA (occurrence: CA)
  Receive Date: 20190305
  Receipt Date: 20200901
  Transmission Date: 20201102
  Serious: Yes (Hospitalization)
  Sender: FDA-Public Use
  Company Number: CA-JNJFOC-20190241461

PATIENT
  Age: 22 Year
  Sex: Female

DRUGS (4)
  1. CELEXA [Interacting]
     Active Substance: CITALOPRAM HYDROBROMIDE
     Indication: TOOTH ABSCESS
     Route: 065
  2. BIAXIN [Interacting]
     Active Substance: CLARITHROMYCIN
     Indication: TOOTH ABSCESS
     Route: 065
  3. IBUPROFEN. [Interacting]
     Active Substance: IBUPROFEN
     Indication: TOOTH ABSCESS
     Route: 065
  4. TYLENOL [Suspect]
     Active Substance: ACETAMINOPHEN
     Indication: TOOTH ABSCESS
     Route: 065

REACTIONS (7)
  - Pyrexia [Unknown]
  - Drug interaction [Unknown]
  - Chills [Unknown]
  - Vomiting [Unknown]
  - Nausea [Unknown]
  - Abdominal pain [Unknown]
  - Tremor [Unknown]

NARRATIVE: CASE EVENT DATE: 20040729
